FAERS Safety Report 9396303 (Version 2)
Quarter: 2013Q3

REPORT INFORMATION
  Report Type: Report from Study
  Country: JP (occurrence: JP)
  Receive Date: 20130711
  Receipt Date: 20130719
  Transmission Date: 20140515
  Serious: Yes (Hospitalization, Disabling)
  Sender: FDA-Public Use
  Company Number: JP-AMGEN-JPNCT2013048628

PATIENT
  Age: 62 Year
  Sex: Male
  Weight: 64 kg

DRUGS (13)
  1. DENOSUMAB [Suspect]
     Indication: METASTASES TO BONE
     Dosage: 120 MG, UNK
     Route: 058
     Dates: start: 20121016, end: 20130301
  2. DENOSUMAB [Suspect]
     Dosage: 2012/10/16,12/4,2013/2/1,3/1
     Route: 058
     Dates: start: 20121016, end: 20130301
  3. CALCIUM LACTATE [Suspect]
     Dosage: UNK
     Route: 048
     Dates: start: 20121016, end: 20130415
  4. ARTIST [Concomitant]
     Dosage: UNK
     Route: 048
     Dates: end: 20130129
  5. ALFAROL [Concomitant]
     Dosage: UNK
     Route: 048
     Dates: start: 20121016, end: 20130415
  6. PRECIPITATED CALCIUM CARBONATE [Concomitant]
     Dosage: UNK
     Route: 048
     Dates: start: 20130618
  7. DEGARELIX [Concomitant]
     Dosage: UNK
     Route: 065
     Dates: start: 20121030
  8. CASODEX [Concomitant]
     Dosage: UNK
     Route: 065
     Dates: start: 20121030
  9. NORVASC [Concomitant]
     Dosage: UNK
     Route: 048
  10. TANATRIL [Concomitant]
     Dosage: UNK
     Route: 048
  11. URSO [Concomitant]
     Dosage: UNK
     Route: 048
  12. CRESTOR [Concomitant]
     Dosage: UNK
     Route: 048
  13. KALIMATE [Concomitant]
     Dosage: UNK
     Route: 048
     Dates: start: 20130515, end: 20130530

REACTIONS (2)
  - Renal failure [Not Recovered/Not Resolved]
  - Hypocalcaemia [Recovered/Resolved]
